FAERS Safety Report 13497187 (Version 1)
Quarter: 2017Q2

REPORT INFORMATION
  Report Type: Spontaneous
  Country: IT (occurrence: IT)
  Receive Date: 20170428
  Receipt Date: 20170428
  Transmission Date: 20170830
  Serious: Yes (Hospitalization)
  Sender: FDA-Public Use
  Company Number: IT-JNJFOC-20170427942

PATIENT
  Age: 84 Year
  Sex: Female

DRUGS (5)
  1. LASIX [Concomitant]
     Active Substance: FUROSEMIDE
     Route: 048
  2. XARELTO [Suspect]
     Active Substance: RIVAROXABAN
     Indication: ATRIAL FIBRILLATION
     Route: 048
     Dates: start: 20160901, end: 20170110
  3. AROMASIN [Concomitant]
     Active Substance: EXEMESTANE
     Route: 048
  4. LANOXIN [Concomitant]
     Active Substance: DIGOXIN
     Route: 048
  5. ESOPRA [Concomitant]
     Route: 048

REACTIONS (4)
  - Abdominal pain [Unknown]
  - Faeces discoloured [Unknown]
  - Melaena [Unknown]
  - Anaemia [Unknown]

NARRATIVE: CASE EVENT DATE: 20170110
